FAERS Safety Report 23987171 (Version 1)
Quarter: 2024Q2

REPORT INFORMATION
  Report Type: Other
  Country: US (occurrence: US)
  Receive Date: 20240618
  Receipt Date: 20240618
  Transmission Date: 20240716
  Serious: Yes (Hospitalization, Other)
  Sender: FDA-Public Use
  Company Number: US-AptaPharma Inc.-2158253

PATIENT
  Age: 56 Year
  Sex: Male

DRUGS (1)
  1. IBUPROFEN [Suspect]
     Active Substance: IBUPROFEN
     Indication: Product used for unknown indication
     Route: 065

REACTIONS (7)
  - Syncope [Recovered/Resolved]
  - Product contamination [Unknown]
  - Intentional product misuse [Unknown]
  - Toxicity to various agents [Recovered/Resolved]
  - Methaemoglobinaemia [Recovered/Resolved]
  - Metabolic acidosis [Recovered/Resolved]
  - Hypoxia [Recovered/Resolved]
